FAERS Safety Report 5891756-X (Version None)
Quarter: 2008Q3

REPORT INFORMATION
  Report Type: 
  Country: None (occurrence: None)
  Receive Date: 20080922
  Receipt Date: 20080911
  Transmission Date: 20090109
  Serious: Yes (Death, Hospitalization)
  Sender: FDA-Public Use
  Company Number: JP-ASTRAZENECA-2008SE04309

PATIENT
  Age: 30111 Day
  Sex: Male
  Weight: 43 kg

DRUGS (9)
  1. BLOPRESS [Suspect]
     Indication: HYPERTENSION
     Route: 048
     Dates: start: 20080430, end: 20080904
  2. OMEPRAZOLE [Suspect]
     Indication: REFLUX OESOPHAGITIS
     Route: 048
     Dates: start: 20080430, end: 20080904
  3. ARTIST [Suspect]
     Indication: CARDIAC FAILURE CHRONIC
     Route: 048
     Dates: start: 20080507, end: 20080904
  4. BASEN [Concomitant]
     Indication: DIABETES MELLITUS
     Route: 048
     Dates: start: 20080516, end: 20080904
  5. LASIX [Concomitant]
     Route: 048
     Dates: start: 20060404, end: 20080904
  6. ITOROL [Concomitant]
     Route: 048
     Dates: end: 20080904
  7. SIGMART [Concomitant]
     Indication: ANGINA PECTORIS
     Route: 048
     Dates: start: 20080509, end: 20080904
  8. RENIVACE [Concomitant]
     Indication: HYPERTENSION
     Route: 048
     Dates: start: 20080430, end: 20080904
  9. HANP [Concomitant]
     Route: 042

REACTIONS (1)
  - RHABDOMYOLYSIS [None]
